FAERS Safety Report 11867192 (Version 1)
Quarter: 2015Q4

REPORT INFORMATION
  Report Type: Spontaneous
  Country: US (occurrence: None)
  Receive Date: 20151223
  Receipt Date: 20151223
  Transmission Date: 20160305
  Serious: No
  Sender: FDA-Public Use
  Company Number: None

PATIENT
  Age: 30 Year
  Sex: Female
  Weight: 76.7 kg

DRUGS (1)
  1. IODIXANOL [Suspect]
     Active Substance: IODIXANOL
     Dosage: ?MG
     Route: 042
     Dates: start: 20150925, end: 20150925

REACTIONS (1)
  - Rash [None]

NARRATIVE: CASE EVENT DATE: 20150929
